FAERS Safety Report 20841142 (Version 8)
Quarter: 2024Q1

REPORT INFORMATION
  Report Type: Spontaneous
  Country: CA (occurrence: CA)
  Receive Date: 20220517
  Receipt Date: 20240324
  Transmission Date: 20240410
  Serious: Yes (Life-Threatening, Hospitalization, Disabling, Other)
  Sender: FDA-Public Use
  Company Number: CA-NOVARTISPH-NVSC2022CA109820

PATIENT
  Age: 43 Year
  Sex: Female
  Weight: 68 kg

DRUGS (82)
  1. COSENTYX [Suspect]
     Active Substance: SECUKINUMAB
     Indication: Psoriatic arthropathy
     Dosage: UNK
     Route: 065
  2. COSENTYX [Suspect]
     Active Substance: SECUKINUMAB
     Dosage: 400 MG, QD
     Route: 065
  3. COSENTYX [Suspect]
     Active Substance: SECUKINUMAB
     Dosage: 400 MG, QD
     Route: 065
  4. COSENTYX [Suspect]
     Active Substance: SECUKINUMAB
     Dosage: 400 MG
     Route: 065
  5. COSENTYX [Suspect]
     Active Substance: SECUKINUMAB
     Dosage: 400 MG
     Route: 048
  6. COSENTYX [Suspect]
     Active Substance: SECUKINUMAB
     Dosage: UNK
     Route: 065
  7. COSENTYX [Suspect]
     Active Substance: SECUKINUMAB
     Dosage: UNK
     Route: 048
  8. METHOTREXATE [Suspect]
     Active Substance: METHOTREXATE
     Indication: Rheumatoid arthritis
     Dosage: 20 MG, QD
     Route: 065
  9. METHOTREXATE [Suspect]
     Active Substance: METHOTREXATE
     Dosage: 25 MG, QW
     Route: 013
  10. METHOTREXATE [Suspect]
     Active Substance: METHOTREXATE
     Dosage: UNK
     Route: 058
  11. METHOTREXATE [Suspect]
     Active Substance: METHOTREXATE
     Indication: Rheumatoid arthritis
     Dosage: 2 G, QD
     Route: 048
  12. METHOTREXATE [Suspect]
     Active Substance: METHOTREXATE
     Dosage: 25 MG, QW
     Route: 048
  13. METHOTREXATE [Suspect]
     Active Substance: METHOTREXATE
     Dosage: UNK
     Route: 065
  14. METHOTREXATE [Suspect]
     Active Substance: METHOTREXATE
     Dosage: UNK
     Route: 065
  15. METHOTREXATE [Suspect]
     Active Substance: METHOTREXATE
     Dosage: UNK
     Route: 065
  16. METHOTREXATE [Suspect]
     Active Substance: METHOTREXATE
     Dosage: 20 MG, QW
     Route: 065
  17. METHOTREXATE [Suspect]
     Active Substance: METHOTREXATE
     Dosage: UNK, QD
     Route: 065
  18. METHOTREXATE [Suspect]
     Active Substance: METHOTREXATE
     Dosage: UNK, QD
     Route: 048
  19. METHOTREXATE [Suspect]
     Active Substance: METHOTREXATE
     Dosage: UNK
     Route: 065
  20. METHOTREXATE [Suspect]
     Active Substance: METHOTREXATE
     Dosage: 25 MG, QW
     Route: 048
  21. METHOTREXATE [Suspect]
     Active Substance: METHOTREXATE
     Dosage: 25 MG, QW
     Route: 048
  22. METHOTREXATE [Suspect]
     Active Substance: METHOTREXATE
     Dosage: 1 G, BID
     Route: 048
  23. METHOTREXATE [Suspect]
     Active Substance: METHOTREXATE
     Dosage: 25 MG
     Route: 048
  24. METHOTREXATE [Suspect]
     Active Substance: METHOTREXATE
     Dosage: 20 MG, QW
     Route: 013
  25. METHOTREXATE [Suspect]
     Active Substance: METHOTREXATE
     Dosage: 20 MG, QW
     Route: 013
  26. METHOTREXATE [Suspect]
     Active Substance: METHOTREXATE
     Dosage: 20 MG, QW
     Route: 013
  27. METHOTREXATE [Suspect]
     Active Substance: METHOTREXATE
     Dosage: 2 G
     Route: 048
  28. METHOTREXATE [Suspect]
     Active Substance: METHOTREXATE
     Dosage: 25 MG
     Route: 048
  29. METHOTREXATE [Suspect]
     Active Substance: METHOTREXATE
     Dosage: 25 MG
     Route: 013
  30. METHOTREXATE [Suspect]
     Active Substance: METHOTREXATE
     Dosage: 1 DOSAGE FORM, QW
     Route: 048
  31. METHOTREXATE [Suspect]
     Active Substance: METHOTREXATE
     Dosage: 25 MG
     Route: 013
  32. METHOTREXATE [Suspect]
     Active Substance: METHOTREXATE
     Dosage: 20 MG
     Route: 048
  33. METHOTREXATE [Suspect]
     Active Substance: METHOTREXATE
     Dosage: 2 G
     Route: 048
  34. ADALIMUMAB [Suspect]
     Active Substance: ADALIMUMAB\ISOPROPYL ALCOHOL
     Indication: Rheumatoid arthritis
     Dosage: UNK (SOLUTION SUBCUTANEOUS)
     Route: 065
  35. ADALIMUMAB [Suspect]
     Active Substance: ADALIMUMAB\ISOPROPYL ALCOHOL
     Dosage: 40 MG (SOLUTION SUBCUTANEOUS)
     Route: 058
  36. ADALIMUMAB [Suspect]
     Active Substance: ADALIMUMAB\ISOPROPYL ALCOHOL
     Indication: Rheumatoid arthritis
     Dosage: UNK
     Route: 058
  37. ADALIMUMAB [Suspect]
     Active Substance: ADALIMUMAB\ISOPROPYL ALCOHOL
     Dosage: 40 MG
     Route: 048
  38. DICLOFENAC SODIUM [Suspect]
     Active Substance: DICLOFENAC\DICLOFENAC SODIUM
     Indication: Product used for unknown indication
     Dosage: UNK
     Route: 065
  39. DICLOFENAC SODIUM [Suspect]
     Active Substance: DICLOFENAC\DICLOFENAC SODIUM
     Dosage: 50 MG
     Route: 065
  40. DICLOFENAC SODIUM [Suspect]
     Active Substance: DICLOFENAC\DICLOFENAC SODIUM
     Dosage: UNK
     Route: 047
  41. ERELZI [Suspect]
     Active Substance: ETANERCEPT-SZZS
     Indication: Rheumatoid arthritis
     Dosage: UNK
     Route: 065
  42. ERELZI [Suspect]
     Active Substance: ETANERCEPT-SZZS
     Dosage: UNK
     Route: 065
  43. ERELZI [Suspect]
     Active Substance: ETANERCEPT-SZZS
     Indication: Rheumatoid arthritis
     Dosage: UNK
     Route: 058
  44. ERELZI [Suspect]
     Active Substance: ETANERCEPT-SZZS
     Dosage: UNK
     Route: 058
  45. ERELZI [Suspect]
     Active Substance: ETANERCEPT-SZZS
     Dosage: UNK
     Route: 065
  46. ERELZI [Suspect]
     Active Substance: ETANERCEPT-SZZS
     Dosage: UNK
     Route: 058
  47. ERELZI [Suspect]
     Active Substance: ETANERCEPT-SZZS
     Dosage: UNK
     Route: 065
  48. ERELZI [Suspect]
     Active Substance: ETANERCEPT-SZZS
     Dosage: 50 MG
     Route: 058
  49. ERELZI [Suspect]
     Active Substance: ETANERCEPT-SZZS
     Dosage: UNK
     Route: 058
  50. ERELZI [Suspect]
     Active Substance: ETANERCEPT-SZZS
     Dosage: 50 MG
     Route: 058
  51. ERELZI [Suspect]
     Active Substance: ETANERCEPT-SZZS
     Dosage: UNK
     Route: 065
  52. ERELZI [Suspect]
     Active Substance: ETANERCEPT-SZZS
     Dosage: UNK
     Route: 058
  53. RITUXIMAB [Suspect]
     Active Substance: RITUXIMAB
     Indication: Rheumatoid arthritis
     Dosage: UNK
     Route: 042
  54. RITUXIMAB [Suspect]
     Active Substance: RITUXIMAB
     Dosage: UNK
     Route: 041
  55. RITUXIMAB [Suspect]
     Active Substance: RITUXIMAB
     Dosage: UNK
     Route: 042
  56. RITUXIMAB [Suspect]
     Active Substance: RITUXIMAB
     Dosage: UNK
     Route: 042
  57. RITUXIMAB [Suspect]
     Active Substance: RITUXIMAB
     Dosage: UNK
     Route: 065
  58. RITUXIMAB [Suspect]
     Active Substance: RITUXIMAB
     Dosage: 1 G
     Route: 042
  59. RITUXIMAB [Suspect]
     Active Substance: RITUXIMAB
     Dosage: 1 G
     Route: 042
  60. RITUXIMAB [Suspect]
     Active Substance: RITUXIMAB
     Dosage: UNK
     Route: 043
  61. HYDROCORTISONE [Suspect]
     Active Substance: HYDROCORTISONE
     Indication: Rheumatoid arthritis
     Dosage: UNK
     Route: 003
  62. HYDROCORTISONE [Suspect]
     Active Substance: HYDROCORTISONE
     Dosage: UNK
     Route: 061
  63. HYDROCORTISONE [Suspect]
     Active Substance: HYDROCORTISONE
     Dosage: UNK
     Route: 065
  64. HYDROCORTISONE [Suspect]
     Active Substance: HYDROCORTISONE
     Dosage: UNK
     Route: 003
  65. HYDROCORTISONE [Suspect]
     Active Substance: HYDROCORTISONE
     Dosage: UNK
     Route: 061
  66. HYDROCORTISONE [Suspect]
     Active Substance: HYDROCORTISONE
     Dosage: UNK
     Route: 065
  67. HYDROCORTISONE [Suspect]
     Active Substance: HYDROCORTISONE
     Dosage: UNK
     Route: 058
  68. ALENDRONATE SODIUM [Suspect]
     Active Substance: ALENDRONATE SODIUM
     Indication: Rheumatoid arthritis
     Dosage: UNK
     Route: 048
  69. LEFLUNOMIDE [Suspect]
     Active Substance: LEFLUNOMIDE
     Indication: Rheumatoid arthritis
     Dosage: 1 DOSAGE FORM, QD
     Route: 048
  70. LEFLUNOMIDE [Suspect]
     Active Substance: LEFLUNOMIDE
     Dosage: UNK
     Route: 048
  71. LEFLUNOMIDE [Suspect]
     Active Substance: LEFLUNOMIDE
     Dosage: UNK
     Route: 065
  72. LEFLUNOMIDE [Suspect]
     Active Substance: LEFLUNOMIDE
     Dosage: UNK
     Route: 065
  73. LEFLUNOMIDE [Suspect]
     Active Substance: LEFLUNOMIDE
     Dosage: UNK
     Route: 065
  74. LEFLUNOMIDE [Suspect]
     Active Substance: LEFLUNOMIDE
     Dosage: 1 DOSAGE FORM, QD
     Route: 048
  75. LEFLUNOMIDE [Suspect]
     Active Substance: LEFLUNOMIDE
     Dosage: UNK
     Route: 065
  76. LEFLUNOMIDE [Suspect]
     Active Substance: LEFLUNOMIDE
     Dosage: UNK
     Route: 048
  77. ALENDRONIC ACID [Suspect]
     Active Substance: ALENDRONIC ACID
     Indication: Rheumatoid arthritis
     Dosage: UNK
     Route: 048
  78. VITAMIN C [Suspect]
     Active Substance: ASCORBIC ACID
     Indication: Product used for unknown indication
     Dosage: UNK
     Route: 065
  79. DICLOFENAC SODIUM [Suspect]
     Active Substance: DICLOFENAC\DICLOFENAC SODIUM
     Indication: Product used for unknown indication
     Dosage: UNK
     Route: 065
  80. MYCOPHENOLATE MOFETIL [Suspect]
     Active Substance: MYCOPHENOLATE MOFETIL
     Indication: Product used for unknown indication
     Dosage: UNK
     Route: 065
  81. OXYCODONE [Suspect]
     Active Substance: OXYCODONE\OXYCODONE HYDROCHLORIDE
     Indication: Product used for unknown indication
     Dosage: UNK
     Route: 065
  82. TRIAMCINOLONE ACETONIDE [Suspect]
     Active Substance: TRIAMCINOLONE ACETONIDE
     Indication: Rheumatoid arthritis
     Dosage: UNK
     Route: 014

REACTIONS (29)
  - Abdominal discomfort [Not Recovered/Not Resolved]
  - Abdominal pain [Not Recovered/Not Resolved]
  - Abdominal pain upper [Not Recovered/Not Resolved]
  - Adverse drug reaction [Not Recovered/Not Resolved]
  - Adverse event [Not Recovered/Not Resolved]
  - Alopecia [Not Recovered/Not Resolved]
  - Anti-cyclic citrullinated peptide antibody positive [Not Recovered/Not Resolved]
  - Arthralgia [Not Recovered/Not Resolved]
  - Arthropathy [Not Recovered/Not Resolved]
  - Blister [Not Recovered/Not Resolved]
  - Breast cancer stage III [Not Recovered/Not Resolved]
  - Condition aggravated [Not Recovered/Not Resolved]
  - Diarrhoea [Not Recovered/Not Resolved]
  - Discomfort [Not Recovered/Not Resolved]
  - Dizziness [Not Recovered/Not Resolved]
  - Drug hypersensitivity [Not Recovered/Not Resolved]
  - Duodenal ulcer perforation [Not Recovered/Not Resolved]
  - Fibromyalgia [Not Recovered/Not Resolved]
  - Fatigue [Not Recovered/Not Resolved]
  - Live birth [Not Recovered/Not Resolved]
  - General physical health deterioration [Not Recovered/Not Resolved]
  - Glossodynia [Not Recovered/Not Resolved]
  - Exposure during pregnancy [Not Recovered/Not Resolved]
  - Maternal exposure during pregnancy [Not Recovered/Not Resolved]
  - Hypoaesthesia [Not Recovered/Not Resolved]
  - Insomnia [Not Recovered/Not Resolved]
  - Malaise [Not Recovered/Not Resolved]
  - Maternal exposure timing unspecified [Not Recovered/Not Resolved]
  - Off label use [Not Recovered/Not Resolved]
